FAERS Safety Report 20126742 (Version 1)
Quarter: 2021Q4

REPORT INFORMATION
  Report Type: Spontaneous
  Country: US (occurrence: None)
  Receive Date: 20211129
  Receipt Date: 20211129
  Transmission Date: 20220303
  Serious: Yes (Hospitalization)
  Sender: FDA-Public Use
  Company Number: None

PATIENT
  Age: 37 Year
  Sex: Female

DRUGS (1)
  1. FONDAPARINUX SODIUM [Suspect]
     Active Substance: FONDAPARINUX SODIUM
     Indication: Deep vein thrombosis
     Dosage: FREQUENCY : DAILY;?
     Route: 058
     Dates: start: 20210930, end: 20211031

REACTIONS (4)
  - Pain in extremity [None]
  - Oedema peripheral [None]
  - Thrombosis [None]
  - Therapy cessation [None]

NARRATIVE: CASE EVENT DATE: 20211031
